FAERS Safety Report 8506734-1 (Version None)
Quarter: 2012Q3

REPORT INFORMATION
  Report Type: 
  Country: None (occurrence: None)
  Receive Date: 20120712
  Receipt Date: 20120710
  Transmission Date: 20120928
  Serious: No
  Sender: FDA-Public Use
  Company Number: US-TEVA-347710USA

PATIENT
  Sex: Male

DRUGS (3)
  1. PROAIR HFA [Suspect]
     Dosage: AS NEEDED
     Dates: start: 20120101
  2. VENTOLIN [Suspect]
  3. ALBUTEROL [Suspect]

REACTIONS (3)
  - DRUG EFFECT DECREASED [None]
  - PRODUCT TASTE ABNORMAL [None]
  - MUSCLE SPASMS [None]
